FAERS Safety Report 17508709 (Version 1)
Quarter: 2020Q1

REPORT INFORMATION
  Report Type: Spontaneous
  Country: US (occurrence: US)
  Receive Date: 20200305
  Receipt Date: 20200305
  Transmission Date: 20200409
  Serious: No
  Sender: FDA-Public Use
  Company Number: None

PATIENT
  Age: 65 Year
  Sex: Female
  Weight: 62.1 kg

DRUGS (3)
  1. E[INVALID] VAGINAL [Concomitant]
  2. MULTIVITAMIN [Concomitant]
     Active Substance: VITAMINS
  3. POLYMYXIN B SULFATE-TRIMETHOPRIM [Suspect]
     Active Substance: POLYMYXIN B SULFATE\TRIMETHOPRIM SULFATE
     Indication: CORNEAL ABRASION
     Dosage: ?          QUANTITY:1 DROP(S);?
     Route: 047
     Dates: start: 20200304, end: 20200305

REACTIONS (2)
  - Product quality issue [None]
  - Eye irritation [None]

NARRATIVE: CASE EVENT DATE: 20200304
